FAERS Safety Report 5317333-7 (Version None)
Quarter: 2007Q2

REPORT INFORMATION
  Report Type: 
  Country: None (occurrence: None)
  Receive Date: 20070504
  Receipt Date: 20070424
  Transmission Date: 20071010
  Serious: Yes (Other)
  Sender: FDA-Public Use
  Company Number: US-PFIZER INC-2007034094

PATIENT
  Sex: Female
  Weight: 67.6 kg

DRUGS (7)
  1. CHANTIX [Suspect]
     Indication: SMOKING CESSATION THERAPY
  2. LEXAPRO [Suspect]
  3. LIPITOR [Concomitant]
     Indication: BLOOD CHOLESTEROL INCREASED
  4. LISINOPRIL [Concomitant]
  5. SYNTHROID [Concomitant]
  6. PREMARIN [Concomitant]
  7. SINEMET [Concomitant]

REACTIONS (9)
  - ABDOMINAL DISTENSION [None]
  - AGGRESSION [None]
  - BACK PAIN [None]
  - FLATULENCE [None]
  - INSOMNIA [None]
  - NAUSEA [None]
  - NIGHTMARE [None]
  - PAROSMIA [None]
  - WEIGHT INCREASED [None]
